FAERS Safety Report 20683595 (Version 2)
Quarter: 2022Q2

REPORT INFORMATION
  Report Type: Spontaneous
  Country: IT (occurrence: IT)
  Receive Date: 20220407
  Receipt Date: 20220419
  Transmission Date: 20220720
  Serious: Yes (Other)
  Sender: FDA-Public Use
  Company Number: IT-TEVA-2022-IT-2023570

PATIENT
  Age: 77 Year
  Sex: Female

DRUGS (2)
  1. DOCETAXEL [Suspect]
     Active Substance: DOCETAXEL
     Indication: Breast angiosarcoma
     Dosage: RECEIVED TWO CYCLES
     Route: 050
  2. GEMCITABINE [Suspect]
     Active Substance: GEMCITABINE
     Indication: Breast angiosarcoma
     Dosage: RECEIVED TWO CYCLES
     Route: 050

REACTIONS (1)
  - Gastrointestinal toxicity [Unknown]
